FAERS Safety Report 7831055-X (Version None)
Quarter: 2011Q4

REPORT INFORMATION
  Report Type: 
  Country: None (occurrence: None)
  Receive Date: 20111021
  Receipt Date: 20111017
  Transmission Date: 20120403
  Serious: Yes (Death)
  Sender: FDA-Public Use
  Company Number: PHHO2011GT17553

PATIENT
  Sex: Female
  Weight: 83 kg

DRUGS (10)
  1. ENALAPRIL MALEATE [Suspect]
     Indication: CARDIAC FAILURE CHRONIC
     Dosage: 5 MG, BID
     Dates: start: 20110330, end: 20110410
  2. LASIX [Concomitant]
     Indication: CARDIAC FAILURE CHRONIC
     Dosage: 40 MG, BID
     Dates: start: 20110125
  3. ALDACTONE [Concomitant]
     Indication: CARDIAC FAILURE CHRONIC
     Dosage: 25 MG, BID
     Dates: start: 20101001
  4. ENALAPRIL MALEATE [Suspect]
     Indication: CARDIAC FAILURE CHRONIC
     Dosage: DOUBLE BLINDED
     Dates: start: 20110524
  5. ENALAPRIL MALEATE [Suspect]
     Dosage: 10 MG, BID
     Dates: start: 20110411, end: 20110424
  6. VALSARTAN [Suspect]
     Dosage: 200 MG, BID
     Dates: start: 20110509, end: 20110522
  7. VALSARTAN [Suspect]
     Indication: CARDIAC FAILURE CHRONIC
     Dosage: DOUBLE BLINDED
     Dates: start: 20110524
  8. VALSARTAN [Suspect]
     Indication: CARDIAC FAILURE CHRONIC
     Dosage: 100 MG, BID
     Dates: start: 20110426, end: 20110508
  9. BLINDED NO TREATMENT RECEIVED [Suspect]
     Indication: CARDIAC FAILURE CHRONIC
     Dosage: DOUBLE BLINDED
     Dates: start: 20110524
  10. COREG [Concomitant]
     Indication: CARDIAC FAILURE CHRONIC
     Dosage: 6.25 MG, BID
     Dates: start: 20101201

REACTIONS (1)
  - CONCOMITANT DISEASE PROGRESSION [None]
